FAERS Safety Report 5287465-0 (Version None)
Quarter: 2007Q1

REPORT INFORMATION
  Report Type: 
  Country: None (occurrence: None)
  Receive Date: 20070116
  Receipt Date: 20060921
  Transmission Date: 20070707
  Serious: No
  Sender: FDA-Public Use
  Company Number: 2006SP003386

PATIENT
  Sex: Female

DRUGS (1)
  1. LUNESTA [Suspect]
     Dosage: 3 MG; ORAL
     Route: 048
     Dates: start: 20060701

REACTIONS (4)
  - GINGIVAL PAIN [None]
  - ORAL PAIN [None]
  - PARAESTHESIA ORAL [None]
  - VULVAL ULCERATION [None]
